FAERS Safety Report 17225494 (Version 1)
Quarter: 2020Q1

REPORT INFORMATION
  Report Type: Spontaneous
  Country: IT (occurrence: IT)
  Receive Date: 20200102
  Receipt Date: 20200102
  Transmission Date: 20200409
  Serious: Yes (Other)
  Sender: FDA-Public Use
  Company Number: NVSC2019IT065844

PATIENT
  Age: 75 Year
  Sex: Male

DRUGS (3)
  1. SENNOSIDES. [Suspect]
     Active Substance: SENNOSIDES
     Indication: DRUG ABUSE
     Dosage: 8 DF
     Route: 048
     Dates: start: 20191013, end: 20191013
  2. GUTTALAX [Suspect]
     Active Substance: SODIUM PICOSULFATE
     Indication: DRUG ABUSE
     Dosage: 35 GTT TOTAL
     Route: 048
     Dates: start: 20191013, end: 20191013
  3. MOVICOL [Suspect]
     Active Substance: POLYETHYLENE GLYCOL 3350\POTASSIUM CHLORIDE\SODIUM BICARBONATE\SODIUM CHLORIDE
     Indication: DRUG ABUSE
     Dosage: 2 DF, TOTAL
     Route: 048
     Dates: start: 20191013, end: 20191013

REACTIONS (7)
  - Drug abuse [Recovering/Resolving]
  - Nausea [Recovering/Resolving]
  - Headache [Recovering/Resolving]
  - Asthenia [Recovering/Resolving]
  - Presyncope [Recovering/Resolving]
  - Diarrhoea [Recovering/Resolving]
  - Malaise [Recovering/Resolving]

NARRATIVE: CASE EVENT DATE: 20191013
